FAERS Safety Report 5108063-5 (Version None)
Quarter: 2006Q3

REPORT INFORMATION
  Report Type: 
  Country: None (occurrence: None)
  Receive Date: 20060915
  Receipt Date: 20060905
  Transmission Date: 20061208
  Serious: Yes (Other)
  Sender: FDA-Public Use
  Company Number: 2006107348

PATIENT
  Age: 34 Year
  Sex: Female

DRUGS (3)
  1. ROGAINE [Suspect]
     Indication: ALOPECIA
     Dosage: 1ML TWICE, TOPICAL
     Route: 061
     Dates: start: 20060801, end: 20060801
  2. DRUG, UNSPECIFIED (DRUG, UNSPECIFIED) [Suspect]
     Indication: HAIR COLOUR CHANGES
     Dosage: UNKNOWN, TOPICAL
     Route: 061
     Dates: start: 20060801
  3. TETRACYCLINE [Concomitant]

REACTIONS (8)
  - BURNING SENSATION [None]
  - HAIR DYE USER [None]
  - MALAISE [None]
  - PAIN OF SKIN [None]
  - RASH ERYTHEMATOUS [None]
  - RASH PRURITIC [None]
  - SKIN DISCOLOURATION [None]
  - SWELLING FACE [None]
